FAERS Safety Report 7523142-0 (Version None)
Quarter: 2011Q2

REPORT INFORMATION
  Report Type: 
  Country: None (occurrence: None)
  Receive Date: 20110525
  Receipt Date: 20101108
  Transmission Date: 20111010
  Serious: Yes (Life-Threatening)
  Sender: FDA-Public Use
  Company Number: TPA2010A04875

PATIENT
  Age: 48 Year
  Sex: Female

DRUGS (2)
  1. COLCHICUM JTL LIQ [Suspect]
     Indication: GOUTY ARTHRITIS
     Dosage: (1 MG,PRN)
     Dates: start: 20070101
  2. ADENURIC (FEBUXOSTAT) [Suspect]
     Indication: GOUTY ARTHRITIS
     Dosage: 80 MG (80 MG, 1 IN 1 D) 1) ORAL
     Route: 048
     Dates: start: 20100401

REACTIONS (5)
  - ARTHRALGIA [None]
  - RENAL FAILURE ACUTE [None]
  - DIALYSIS [None]
  - DYSAESTHESIA [None]
  - GENERAL PHYSICAL HEALTH DETERIORATION [None]
